FAERS Safety Report 9315481 (Version 2)
Quarter: 2013Q2

REPORT INFORMATION
  Report Type: Report from Study
  Country: DK (occurrence: DK)
  Receive Date: 20130529
  Receipt Date: 20130619
  Transmission Date: 20140414
  Serious: Yes (Hospitalization, Other)
  Sender: FDA-Public Use
  Company Number: DK-CELGENEUS-044-C4047-13052658

PATIENT
  Age: 58 Year
  Sex: Female
  Weight: 65 kg

DRUGS (15)
  1. CC-4047 [Suspect]
     Indication: PLASMA CELL MYELOMA
     Dosage: 4 MILLIGRAM
     Route: 048
     Dates: start: 20130325, end: 20130415
  2. CC-4047 [Suspect]
     Dosage: 4 MILLIGRAM
     Route: 048
     Dates: start: 20130423, end: 20130513
  3. CC-4047 [Suspect]
     Dosage: 4 MILLIGRAM
     Route: 048
     Dates: start: 20130521, end: 20130603
  4. DEXAMETHASONE [Suspect]
     Indication: PLASMA CELL MYELOMA
     Route: 048
     Dates: start: 20130325, end: 20130415
  5. DEXAMETHASONE [Suspect]
     Route: 048
     Dates: start: 20130423, end: 20130514
  6. DEXAMETHASONE [Suspect]
     Route: 048
     Dates: start: 20130521, end: 20130603
  7. DEXAMETHASONE [Suspect]
     Route: 048
     Dates: start: 20130603, end: 20130606
  8. ACETYLSALICYLSYRE [Concomitant]
     Indication: THROMBOSIS PROPHYLAXIS
     Dosage: 75 MILLIGRAM
     Route: 065
     Dates: start: 20120514
  9. ACICLOVIR [Concomitant]
     Indication: INFECTION PROPHYLAXIS
     Dosage: 800 MILLIGRAM
     Route: 065
     Dates: start: 20080704
  10. ZELEDRONSYRE [Concomitant]
     Indication: PROPHYLAXIS
     Route: 065
     Dates: start: 20130311
  11. ALLOPURINOL [Concomitant]
     Indication: HYPERURICAEMIA
     Dosage: 300 MILLIGRAM
     Route: 065
     Dates: start: 20130325
  12. TRAMADOL [Concomitant]
     Indication: PROPHYLAXIS
     Route: 065
     Dates: start: 20130409
  13. CHLORAMPHENICOL [Concomitant]
     Indication: CONJUNCTIVITIS
     Route: 065
     Dates: start: 20130423, end: 20130428
  14. NITROFUANTOIN [Concomitant]
     Indication: CYSTITIS
     Dosage: 150 MILLIGRAM
     Route: 065
     Dates: start: 20130419, end: 20130425
  15. NITROFUANTOIN [Concomitant]
     Dosage: 150 MILLIGRAM
     Route: 065
     Dates: start: 20130516, end: 20130517

REACTIONS (4)
  - Infection [Recovered/Resolved]
  - Hypercalcaemia [Not Recovered/Not Resolved]
  - Plasma cell myeloma [Not Recovered/Not Resolved]
  - Renal failure [Not Recovered/Not Resolved]
